FAERS Safety Report 13542101 (Version 1)
Quarter: 2017Q2

REPORT INFORMATION
  Report Type: Report from Study
  Country: US (occurrence: US)
  Receive Date: 20170512
  Receipt Date: 20170512
  Transmission Date: 20170830
  Serious: Yes (Other)
  Sender: FDA-Public Use
  Company Number: US-BRISTOL-MYERS SQUIBB COMPANY-BMS-2017-040684

PATIENT
  Age: 85 Year
  Sex: Female

DRUGS (36)
  1. IPILIMUMAB [Suspect]
     Active Substance: IPILIMUMAB
     Indication: PRODUCT USED FOR UNKNOWN INDICATION
     Dosage: 1508 UNK, UNK
     Route: 042
     Dates: start: 20141215, end: 20141215
  2. BEVACIZUMAB [Suspect]
     Active Substance: BEVACIZUMAB
     Indication: PRODUCT USED FOR UNKNOWN INDICATION
     Dosage: 1508 UNK, UNK
     Route: 042
     Dates: start: 20140828, end: 20140828
  3. BEVACIZUMAB [Suspect]
     Active Substance: BEVACIZUMAB
     Indication: PRODUCT USED FOR UNKNOWN INDICATION
     Dosage: 1508 UNK, UNK
     Route: 042
     Dates: start: 20141103, end: 20141103
  4. BEVACIZUMAB [Suspect]
     Active Substance: BEVACIZUMAB
     Indication: PRODUCT USED FOR UNKNOWN INDICATION
     Dosage: 1508 UNK, UNK
     Route: 042
     Dates: start: 20150914, end: 20150914
  5. IPILIMUMAB [Suspect]
     Active Substance: IPILIMUMAB
     Indication: PRODUCT USED FOR UNKNOWN INDICATION
     Dosage: 1508 UNK, UNK
     Route: 042
     Dates: start: 20140918, end: 20140918
  6. IPILIMUMAB [Suspect]
     Active Substance: IPILIMUMAB
     Indication: PRODUCT USED FOR UNKNOWN INDICATION
     Dosage: 1508 UNK, UNK
     Route: 042
     Dates: start: 20150105, end: 20150105
  7. IPILIMUMAB [Suspect]
     Active Substance: IPILIMUMAB
     Indication: PRODUCT USED FOR UNKNOWN INDICATION
     Dosage: 1508 UNK, UNK
     Route: 042
     Dates: start: 20150713, end: 20150713
  8. IPILIMUMAB [Suspect]
     Active Substance: IPILIMUMAB
     Indication: PRODUCT USED FOR UNKNOWN INDICATION
     Dosage: 1508 UNK, UNK
     Route: 042
     Dates: start: 20150803, end: 20150803
  9. BEVACIZUMAB [Suspect]
     Active Substance: BEVACIZUMAB
     Indication: PRODUCT USED FOR UNKNOWN INDICATION
     Dosage: 1508 UNK, UNK
     Route: 042
     Dates: start: 20141009, end: 20141009
  10. BEVACIZUMAB [Suspect]
     Active Substance: BEVACIZUMAB
     Indication: PRODUCT USED FOR UNKNOWN INDICATION
     Dosage: 1508 UNK, UNK
     Route: 042
     Dates: start: 20150330, end: 20150330
  11. IPILIMUMAB [Suspect]
     Active Substance: IPILIMUMAB
     Indication: PRODUCT USED FOR UNKNOWN INDICATION
     Dosage: 1508 UNK, UNK
     Route: 042
     Dates: start: 20150511, end: 20150511
  12. IPILIMUMAB [Suspect]
     Active Substance: IPILIMUMAB
     Indication: PRODUCT USED FOR UNKNOWN INDICATION
     Dosage: 1508 UNK, UNK
     Route: 042
     Dates: start: 20150914, end: 20150914
  13. BEVACIZUMAB [Suspect]
     Active Substance: BEVACIZUMAB
     Indication: PRODUCT USED FOR UNKNOWN INDICATION
     Dosage: 1508 UNK, UNK
     Route: 042
     Dates: start: 20140918, end: 20140918
  14. BEVACIZUMAB [Suspect]
     Active Substance: BEVACIZUMAB
     Indication: PRODUCT USED FOR UNKNOWN INDICATION
     Dosage: 1508 UNK, UNK
     Route: 042
     Dates: start: 20141124, end: 20141124
  15. IPILIMUMAB [Suspect]
     Active Substance: IPILIMUMAB
     Indication: PRODUCT USED FOR UNKNOWN INDICATION
     Dosage: 1508 UNK, UNK
     Route: 042
     Dates: start: 20150218, end: 20150218
  16. BEVACIZUMAB [Suspect]
     Active Substance: BEVACIZUMAB
     Indication: PRODUCT USED FOR UNKNOWN INDICATION
     Dosage: 1508 UNK, UNK
     Route: 042
     Dates: start: 20150803, end: 20150803
  17. IPILIMUMAB [Suspect]
     Active Substance: IPILIMUMAB
     Indication: MALIGNANT MELANOMA
     Dosage: 302 MG, UNK
     Route: 042
     Dates: start: 20140807, end: 20140807
  18. IPILIMUMAB [Suspect]
     Active Substance: IPILIMUMAB
     Indication: PRODUCT USED FOR UNKNOWN INDICATION
     Dosage: 1508 UNK, UNK
     Route: 042
     Dates: start: 20141103, end: 20141103
  19. IPILIMUMAB [Suspect]
     Active Substance: IPILIMUMAB
     Indication: PRODUCT USED FOR UNKNOWN INDICATION
     Dosage: 1508 UNK, UNK
     Route: 042
     Dates: start: 20141124, end: 20141124
  20. IPILIMUMAB [Suspect]
     Active Substance: IPILIMUMAB
     Indication: PRODUCT USED FOR UNKNOWN INDICATION
     Dosage: 1508 UNK, UNK
     Route: 042
     Dates: start: 20150128, end: 20150128
  21. BEVACIZUMAB [Suspect]
     Active Substance: BEVACIZUMAB
     Indication: PRODUCT USED FOR UNKNOWN INDICATION
     Dosage: 1508 UNK, UNK
     Route: 042
     Dates: start: 20150511, end: 20150511
  22. IPILIMUMAB [Suspect]
     Active Substance: IPILIMUMAB
     Indication: PRODUCT USED FOR UNKNOWN INDICATION
     Dosage: 1508 UNK, UNK
     Route: 042
     Dates: start: 20150420, end: 20150420
  23. IPILIMUMAB [Suspect]
     Active Substance: IPILIMUMAB
     Indication: PRODUCT USED FOR UNKNOWN INDICATION
     Dosage: 1508 UNK, UNK
     Route: 042
     Dates: start: 20150601, end: 20150601
  24. IPILIMUMAB [Suspect]
     Active Substance: IPILIMUMAB
     Indication: PRODUCT USED FOR UNKNOWN INDICATION
     Dosage: 1508 UNK, UNK
     Route: 042
     Dates: start: 20150622, end: 20150622
  25. BEVACIZUMAB [Suspect]
     Active Substance: BEVACIZUMAB
     Indication: PRODUCT USED FOR UNKNOWN INDICATION
     Dosage: 1508 UNK, UNK
     Route: 042
     Dates: start: 20141215, end: 20141215
  26. BEVACIZUMAB [Suspect]
     Active Substance: BEVACIZUMAB
     Indication: PRODUCT USED FOR UNKNOWN INDICATION
     Dosage: 1508 UNK, UNK
     Route: 042
     Dates: start: 20150309, end: 20150309
  27. BEVACIZUMAB [Suspect]
     Active Substance: BEVACIZUMAB
     Indication: PRODUCT USED FOR UNKNOWN INDICATION
     Dosage: 1508 UNK, UNK
     Route: 042
     Dates: start: 20150420, end: 20150420
  28. IPILIMUMAB [Suspect]
     Active Substance: IPILIMUMAB
     Indication: PRODUCT USED FOR UNKNOWN INDICATION
     Dosage: 1508 UNK, UNK
     Route: 042
     Dates: start: 20150309, end: 20150309
  29. IPILIMUMAB [Suspect]
     Active Substance: IPILIMUMAB
     Indication: PRODUCT USED FOR UNKNOWN INDICATION
     Dosage: 1508 UNK, UNK
     Route: 042
     Dates: start: 20150330, end: 20150330
  30. BEVACIZUMAB [Suspect]
     Active Substance: BEVACIZUMAB
     Indication: PRODUCT USED FOR UNKNOWN INDICATION
     Dosage: 1508 UNK, UNK
     Route: 042
     Dates: start: 20150601, end: 20150601
  31. BEVACIZUMAB [Suspect]
     Active Substance: BEVACIZUMAB
     Indication: PRODUCT USED FOR UNKNOWN INDICATION
     Dosage: 1508 UNK, UNK
     Route: 042
     Dates: start: 20150713, end: 20150713
  32. IPILIMUMAB [Suspect]
     Active Substance: IPILIMUMAB
     Indication: PRODUCT USED FOR UNKNOWN INDICATION
     Dosage: 1508 UNK, UNK
     Route: 042
     Dates: start: 20140828, end: 20140828
  33. BEVACIZUMAB [Suspect]
     Active Substance: BEVACIZUMAB
     Indication: MALIGNANT MELANOMA
     Dosage: 302 MG, UNK
     Route: 042
     Dates: start: 20140807, end: 20140807
  34. BEVACIZUMAB [Suspect]
     Active Substance: BEVACIZUMAB
     Indication: PRODUCT USED FOR UNKNOWN INDICATION
     Dosage: 1508 UNK, UNK
     Route: 042
     Dates: start: 20150128, end: 20150128
  35. BEVACIZUMAB [Suspect]
     Active Substance: BEVACIZUMAB
     Indication: PRODUCT USED FOR UNKNOWN INDICATION
     Dosage: 1508 UNK, UNK
     Route: 042
     Dates: start: 20150218, end: 20150218
  36. BEVACIZUMAB [Suspect]
     Active Substance: BEVACIZUMAB
     Indication: PRODUCT USED FOR UNKNOWN INDICATION
     Dosage: 1508 UNK, UNK
     Route: 042
     Dates: start: 20150622, end: 20150622

REACTIONS (1)
  - Hypertension [Unknown]
